FAERS Safety Report 6257763-2 (Version None)
Quarter: 2009Q3

REPORT INFORMATION
  Report Type: 
  Country: None (occurrence: None)
  Receive Date: 20090706
  Receipt Date: 20090629
  Transmission Date: 20100115
  Serious: Yes (Hospitalization)
  Sender: FDA-Public Use
  Company Number: US-ASTRAZENECA-2009UW18157

PATIENT
  Age: 54 Year
  Sex: Male
  Weight: 152.4 kg

DRUGS (6)
  1. SEROQUEL [Suspect]
     Route: 048
  2. ZOLOFT [Concomitant]
  3. ATIVAN [Concomitant]
  4. GLIPERIDE [Concomitant]
  5. AUGMENTIN [Concomitant]
     Dosage: GENERIC
  6. CODEINE [Concomitant]
     Indication: PROCEDURAL PAIN

REACTIONS (3)
  - APPENDICITIS PERFORATED [None]
  - GANGRENE [None]
  - INFECTION [None]
